FAERS Safety Report 8379305-8 (Version None)
Quarter: 2012Q2

REPORT INFORMATION
  Report Type: 
  Country: None (occurrence: None)
  Receive Date: 20120523
  Receipt Date: 20120516
  Transmission Date: 20120825
  Serious: Yes (Other)
  Sender: FDA-Public Use
  Company Number: PHHY2012BR033068

PATIENT
  Sex: Female
  Weight: 49 kg

DRUGS (3)
  1. VITAMINS NOS [Concomitant]
     Dosage: 1 DF, QD
  2. GLEEVEC [Suspect]
     Indication: GASTROINTESTINAL STROMAL TUMOUR
     Dosage: 400 MG, 1 TABLET A DAY
     Route: 048
     Dates: start: 20110801
  3. COMBIROM FOLICO [Concomitant]
     Indication: BLOOD IRON
     Dosage: UNK UKN, UNK

REACTIONS (2)
  - OLIGOMENORRHOEA [None]
  - MENORRHAGIA [None]
